FAERS Safety Report 8393244-8 (Version None)
Quarter: 2012Q2

REPORT INFORMATION
  Report Type: 
  Country: None (occurrence: None)
  Receive Date: 20120529
  Receipt Date: 20120517
  Transmission Date: 20120825
  Serious: Yes (Hospitalization)
  Sender: FDA-Public Use
  Company Number: JP-B.I. PHARMACEUTICALS,INC./RIDGEFIELD-2012-BP-06361NB

PATIENT
  Sex: Male
  Weight: 74.5 kg

DRUGS (12)
  1. TANATRIL [Concomitant]
     Dosage: 5 MG
     Route: 048
  2. PRADAXA [Suspect]
     Indication: ATRIAL FIBRILLATION
     Dosage: 220 MG
     Route: 048
     Dates: end: 20120404
  3. ANPLAG [Suspect]
     Indication: SKIN ULCER
     Dosage: 300 MG
     Route: 048
  4. EQUA [Concomitant]
     Dosage: 50 MG
     Route: 048
  5. CARVEDILOL [Concomitant]
     Dosage: 2.5 MG
     Route: 048
  6. SLOW-K [Concomitant]
     Dosage: 1800 MG
     Route: 048
  7. REZALTAS [Concomitant]
     Route: 048
  8. ALINAMIN-F [Concomitant]
     Dosage: 50 MG
     Route: 048
  9. ASPIRIN [Suspect]
     Indication: ANGINA PECTORIS
     Dosage: 100 MG
     Route: 048
     Dates: end: 20120404
  10. DORNER [Suspect]
     Dosage: 60 MCG
     Route: 048
  11. TRICHLORMETHIAZIDE [Concomitant]
     Dosage: 2 MG
     Route: 048
  12. YOKU-KAN-SAN [Concomitant]
     Route: 048

REACTIONS (6)
  - HAEMORRHAGE SUBCUTANEOUS [None]
  - RENAL IMPAIRMENT [None]
  - INTERNATIONAL NORMALISED RATIO INCREASED [None]
  - BENIGN PROSTATIC HYPERPLASIA [None]
  - ACTIVATED PARTIAL THROMBOPLASTIN TIME PROLONGED [None]
  - DYSURIA [None]
